FAERS Safety Report 4349200-X (Version None)
Quarter: 2004Q2

REPORT INFORMATION
  Report Type: 
  Country: None (occurrence: None)
  Receive Date: 20040428
  Receipt Date: 20040316
  Transmission Date: 20050107
  Serious: Yes (Other)
  Sender: FDA-Public Use
  Company Number: JP-ROCHE-361739

PATIENT
  Age: 79 Year
  Sex: Female

DRUGS (10)
  1. PANALDINE [Suspect]
     Route: 048
     Dates: start: 20020927, end: 20021029
  2. SYMMETREL [Suspect]
     Indication: DRUG USE FOR UNKNOWN INDICATION
     Route: 048
     Dates: start: 20021004, end: 20021029
  3. DOPS [Concomitant]
     Indication: DRUG USE FOR UNKNOWN INDICATION
     Route: 048
     Dates: start: 20021022, end: 20021029
  4. SERMION [Concomitant]
     Route: 048
     Dates: start: 20020927, end: 20021029
  5. CEPHADOL [Concomitant]
     Route: 048
     Dates: start: 20020927, end: 20021029
  6. LIPITOR [Concomitant]
     Route: 048
     Dates: start: 20021004, end: 20021029
  7. BUP-4 [Concomitant]
     Route: 048
     Dates: start: 20021004, end: 20021029
  8. PERIACTIN [Concomitant]
     Route: 048
     Dates: start: 20021004, end: 20021029
  9. NAUZELIN [Concomitant]
     Dates: start: 20021004, end: 20021029
  10. MAGNESIUM OXIDE [Concomitant]
     Route: 048
     Dates: start: 20021004, end: 20021029

REACTIONS (2)
  - LIVER DISORDER [None]
  - RENAL DISORDER [None]
